FAERS Safety Report 5182669-X (Version None)
Quarter: 2006Q4

REPORT INFORMATION
  Report Type: 
  Country: None (occurrence: None)
  Receive Date: 20061212
  Receipt Date: 20061127
  Transmission Date: 20070319
  Serious: Yes (Hospitalization)
  Sender: FDA-Public Use
  Company Number: 2006S1011034

PATIENT
  Age: 10 Year
  Sex: Male

DRUGS (7)
  1. LEVOTHYROXINE SODIUM [Suspect]
     Dosage: 50 UG; QD; PO
     Route: 048
  2. LEXAPRO [Suspect]
     Dosage: 10 MG; QD; PO
     Route: 048
  3. LITHIUM CARBONATE [Suspect]
     Dosage: 1200 MG; BID; PO
     Route: 048
  4. CLONIDINE [Suspect]
     Dosage: 0.4 MG; BID; PO
     Route: 048
  5. METHYLPHENIDATE HCL [Suspect]
     Dosage: 36 MG; QD; PO
     Route: 048
  6. OXCARBAZEPINE [Suspect]
     Dosage: 600 MG; QD; PO
     Route: 048
  7. DEPAKOTE [Suspect]

REACTIONS (19)
  - ABDOMINAL PAIN [None]
  - ATRIOVENTRICULAR BLOCK FIRST DEGREE [None]
  - CHEST PAIN [None]
  - DIARRHOEA [None]
  - DISORIENTATION [None]
  - DIZZINESS [None]
  - DRUG INTERACTION [None]
  - HYPERHIDROSIS [None]
  - HYPOTENSION [None]
  - HYPOTHYROIDISM [None]
  - ORAL INTAKE REDUCED [None]
  - PALLOR [None]
  - PALPITATIONS [None]
  - RHYTHM IDIOVENTRICULAR [None]
  - THERAPEUTIC AGENT TOXICITY [None]
  - VENTRICULAR EXTRASYSTOLES [None]
  - VENTRICULAR TACHYCARDIA [None]
  - VOMITING [None]
  - WHITE BLOOD CELL COUNT INCREASED [None]
